FAERS Safety Report 5300757-1 (Version None)
Quarter: 2007Q2

REPORT INFORMATION
  Report Type: 
  Country: None (occurrence: None)
  Receive Date: 20070418
  Receipt Date: 20070312
  Transmission Date: 20071010
  Serious: Yes (Other)
  Sender: FDA-Public Use
  Company Number: US-SANOFI-SYNTHELABO-A03200702135

PATIENT
  Sex: Male

DRUGS (3)
  1. LORAZEPAM [Concomitant]
     Dosage: UNK
     Route: 065
  2. AMBIEN [Suspect]
     Indication: INSOMNIA
     Dosage: UNK
     Route: 048
     Dates: start: 20060619, end: 20060701
  3. ALCOHOL [Concomitant]
     Dosage: UNK
     Route: 065
     Dates: start: 20060701

REACTIONS (5)
  - ABNORMAL SLEEP-RELATED EVENT [None]
  - IMPAIRED DRIVING ABILITY [None]
  - LEGAL PROBLEM [None]
  - ROAD TRAFFIC ACCIDENT [None]
  - SLEEP WALKING [None]
